FAERS Safety Report 20427952 (Version 2)
Quarter: 2022Q1

REPORT INFORMATION
  Report Type: Spontaneous
  Country: JP (occurrence: JP)
  Receive Date: 20220204
  Receipt Date: 20220217
  Transmission Date: 20220423
  Serious: Yes (Hospitalization)
  Sender: FDA-Public Use
  Company Number: JP-SA-2022SA030732

PATIENT
  Age: 53 Year
  Sex: Male

DRUGS (6)
  1. DUPIXENT [Suspect]
     Active Substance: DUPILUMAB
     Indication: Dermatitis atopic
     Dosage: 300 MG, QOW
     Route: 058
     Dates: start: 20210510, end: 20220103
  2. CLARITIN [Concomitant]
     Active Substance: LORATADINE
     Indication: Dermatitis atopic
     Dosage: 1 DF, QD
     Route: 048
  3. BYAKKOKANINJINTO [Concomitant]
     Indication: Dermatitis atopic
     Dosage: 6 G, QD
     Route: 048
     Dates: start: 201707
  4. GLYCOSAMINOGLYCANS [Concomitant]
     Active Substance: GLYCOSAMINOGLYCANS
     Indication: Dermatitis atopic
     Dosage: 10 G, BID
     Route: 061
     Dates: start: 201706
  5. OLMESARTAN MEDOXOMIL [Concomitant]
     Active Substance: OLMESARTAN MEDOXOMIL
     Indication: Hypertension
     Dosage: 1 DF, QD
     Route: 048
     Dates: start: 20161116
  6. DOVONEX [Concomitant]
     Active Substance: CALCIPOTRIENE
     Indication: Palmoplantar pustulosis
     Dosage: 2 G, QD
     Route: 061
     Dates: start: 202007

REACTIONS (2)
  - Arthritis [Recovered/Resolved]
  - Arthralgia [Recovered/Resolved]

NARRATIVE: CASE EVENT DATE: 20211223
